FAERS Safety Report 9352988 (Version 1)
Quarter: 2013Q2

REPORT INFORMATION
  Report Type: Spontaneous
  Country: SE (occurrence: SE)
  Receive Date: 20130618
  Receipt Date: 20130618
  Transmission Date: 20140414
  Serious: Yes (Other)
  Sender: FDA-Public Use
  Company Number: PHHY2013SE060669

PATIENT
  Age: 77 Year
  Sex: Male

DRUGS (4)
  1. MIRTAZAPINE [Suspect]
     Indication: ANXIETY
  2. MIRTAZAPINE [Interacting]
     Indication: EMOTIONAL DISTRESS
  3. MIRTAZAPINE [Interacting]
     Indication: CRYING
  4. CARBAMAZEPINE [Interacting]

REACTIONS (2)
  - Drug interaction [Unknown]
  - Drug effect decreased [Unknown]
